FAERS Safety Report 5880090-X (Version None)
Quarter: 2008Q3

REPORT INFORMATION
  Report Type: 
  Country: None (occurrence: None)
  Receive Date: 20080911
  Receipt Date: 20080911
  Transmission Date: 20090109
  Serious: Yes (Hospitalization)
  Sender: FDA-Public Use
  Company Number: None

PATIENT
  Age: 80 Year
  Sex: Male
  Weight: 94 kg

DRUGS (2)
  1. WARFARIN SODIUM [Suspect]
     Dosage: 3 MG OTHER PO
     Route: 048
     Dates: start: 20030306, end: 20080512
  2. WARFARIN SODIUM [Suspect]
     Dosage: 2.5 MG OTHER PO
     Route: 048
     Dates: start: 20080306, end: 20080512

REACTIONS (2)
  - CEREBRAL HAEMORRHAGE [None]
  - FALL [None]
